FAERS Safety Report 9784171 (Version 3)
Quarter: 2014Q1

REPORT INFORMATION
  Report Type: Spontaneous
  Country: JP (occurrence: JP)
  Receive Date: 20131226
  Receipt Date: 20140310
  Transmission Date: 20141002
  Serious: Yes (Other)
  Sender: FDA-Public Use
  Company Number: JP-PFIZER INC-2013367754

PATIENT
  Age: 27 Year
  Sex: Female

DRUGS (2)
  1. ZITHROMAC [Suspect]
     Dosage: 500 MG, 3X/DAY
     Route: 048
     Dates: start: 20131216, end: 20131216
  2. LOXOPROFEN [Concomitant]
     Indication: TOOTHACHE
     Dosage: 60 MG, DAILY
     Route: 048
     Dates: start: 20131216

REACTIONS (3)
  - Haematochezia [Recovered/Resolved]
  - Incorrect dose administered [Unknown]
  - Malaise [Unknown]
